FAERS Safety Report 20135143 (Version 1)
Quarter: 2021Q4

REPORT INFORMATION
  Report Type: Spontaneous
  Country: US (occurrence: None)
  Receive Date: 20211130
  Receipt Date: 20211130
  Transmission Date: 20220303
  Serious: Yes (Hospitalization)
  Sender: FDA-Public Use
  Company Number: None

PATIENT
  Age: 56 Year
  Sex: Female
  Weight: 75 kg

DRUGS (7)
  1. YESCARTA [Suspect]
     Active Substance: AXICABTAGENE CILOLEUCEL
     Indication: Diffuse large B-cell lymphoma
     Dosage: OTHER FREQUENCY : ONCE;?
     Route: 041
     Dates: start: 20210901, end: 20210901
  2. acyclovir (Zovirax) [Concomitant]
  3. KEPPRA [Concomitant]
     Active Substance: LEVETIRACETAM
  4. filgrastim-sndz (Zarxio) 480 mcg Syrg [Concomitant]
  5. anakinra (Kineret) subcutaneous injection [Concomitant]
  6. DECADRON [Concomitant]
     Active Substance: DEXAMETHASONE
  7. methylPREDNISolone (SOLU-Medrol [Concomitant]

REACTIONS (9)
  - Lethargy [None]
  - Somnolence [None]
  - Disease progression [None]
  - Neurotoxicity [None]
  - Brain oedema [None]
  - Cytopenia [None]
  - Decreased appetite [None]
  - Physical deconditioning [None]
  - Nervous system disorder [None]

NARRATIVE: CASE EVENT DATE: 20210901
